FAERS Safety Report 5022299-3 (Version None)
Quarter: 2006Q2

REPORT INFORMATION
  Report Type: 
  Country: None (occurrence: None)
  Receive Date: 20060609
  Receipt Date: 20060602
  Transmission Date: 20061013
  Serious: Yes (Hospitalization)
  Sender: FDA-Public Use
  Company Number: FR-GLAXOSMITHKLINE-B0426618A

PATIENT
  Age: 11 Year
  Sex: Male
  Weight: 64 kg

DRUGS (6)
  1. ZOPHREN [Suspect]
     Route: 042
     Dates: start: 20051114
  2. PLITICAN [Suspect]
     Route: 042
     Dates: start: 20051101
  3. ONCOVIN [Suspect]
     Dosage: 2MG CYCLIC
     Route: 042
     Dates: start: 20051114
  4. CARBOPLATINE [Suspect]
     Dosage: 913MG CYCLIC
     Route: 042
     Dates: start: 20051114
  5. BACTRIM [Concomitant]
     Dosage: 60MG THREE TIMES PER WEEK
     Route: 048
  6. ETOPOSIDE [Concomitant]
     Route: 065
     Dates: start: 20051114

REACTIONS (4)
  - HYPONATRAEMIA [None]
  - INAPPROPRIATE ANTIDIURETIC HORMONE SECRETION [None]
  - MALAISE [None]
  - WEIGHT INCREASED [None]
